FAERS Safety Report 9648513 (Version 1)
Quarter: 2013Q4

REPORT INFORMATION
  Report Type: Spontaneous
  Country: US (occurrence: None)
  Receive Date: 20131024
  Receipt Date: 20131024
  Transmission Date: 20140711
  Serious: Yes (Hospitalization, Other)
  Sender: FDA-Public Use
  Company Number: 2012-004281

PATIENT
  Age: 66 Year
  Sex: Female
  Weight: 65.3 kg

DRUGS (10)
  1. ACTONEL [Suspect]
     Indication: OSTEOPOROSIS
     Dosage: 35 MG ONCE WEEKLY, ORAL
     Route: 048
     Dates: start: 20040714, end: 20090112
  2. ACTONEL [Suspect]
     Indication: OSTEOPOROSIS PROPHYLAXIS
     Dosage: 35 MG ONCE WEEKLY, ORAL
     Route: 048
     Dates: start: 20040714, end: 20090112
  3. ALENDRONATE SODIUM [Suspect]
     Indication: OSTEOPOROSIS
     Dosage: 70 MG ONCE WEEKLY, ORAL
     Route: 048
     Dates: start: 20090116, end: 201011
  4. ALENDRONATE SODIUM [Suspect]
     Indication: OSTEOPOROSIS PROPHYLAXIS
     Dosage: 70 MG ONCE WEEKLY, ORAL
     Route: 048
     Dates: start: 20090116, end: 201011
  5. LIPITOR ( ATORVASTATIN CALCIUM) [Concomitant]
  6. LEXAPRO ( ESCITALOPRAM OXALATE) [Concomitant]
  7. MULTIVITAMIN ( ASCORBIC ACID, CALCIUM PANTOTHENATE, ERGOCALCIFEROL, NICOTINAMIDE, PYRIDOXINE HYDROCHLORIDE, RETINOL, RIBOFLAVIN, THIAMINE HYDROCHLORIDE) [Concomitant]
  8. CALCIUM CARBONATE ( CALCIUM CARBONATE) [Concomitant]
  9. FOSAMAX [Suspect]
     Indication: OSTEOPOROSIS
  10. FOSAMAX [Suspect]
     Indication: OSTEOPOROSIS PROPHYLAXIS

REACTIONS (10)
  - Atypical femur fracture [None]
  - Myalgia [None]
  - Arthralgia [None]
  - Fall [None]
  - Femur fracture [None]
  - Fracture displacement [None]
  - Comminuted fracture [None]
  - Stress fracture [None]
  - Bone disorder [None]
  - Low turnover osteopathy [None]
